FAERS Safety Report 15653225 (Version 1)
Quarter: 2018Q4

REPORT INFORMATION
  Report Type: Spontaneous
  Country: FR (occurrence: FR)
  Receive Date: 20181124
  Receipt Date: 20181124
  Transmission Date: 20190205
  Serious: Yes (Other)
  Sender: FDA-Public Use
  Company Number: FR-TEVA-2018-FR-977494

PATIENT
  Sex: Male
  Weight: 72 kg

DRUGS (2)
  1. ESTREVA 0,1 %, GEL [Suspect]
     Active Substance: ESTRADIOL
     Indication: BLOOD TESTOSTERONE DECREASED
     Route: 003
     Dates: start: 19901018
  2. ANDROCUR 50 MG, COMPRIM? [Suspect]
     Active Substance: CYPROTERONE ACETATE
     Indication: BLOOD TESTOSTERONE DECREASED
     Dosage: 50 MILLIGRAM DAILY;
     Route: 048
     Dates: start: 19901018, end: 20160310

REACTIONS (3)
  - Headache [Not Recovered/Not Resolved]
  - Meningioma [Not Recovered/Not Resolved]
  - Axonal neuropathy [Not Recovered/Not Resolved]

NARRATIVE: CASE EVENT DATE: 20131227
